FAERS Safety Report 10053569 (Version 1)
Quarter: 2014Q2

REPORT INFORMATION
  Report Type: Spontaneous
  Country: US (occurrence: US)
  Receive Date: 20140402
  Receipt Date: 20140402
  Transmission Date: 20141212
  Serious: No
  Sender: FDA-Public Use
  Company Number: US-PFIZER INC-2014089346

PATIENT
  Sex: Male

DRUGS (2)
  1. LYRICA [Suspect]
     Indication: NEUROPATHY PERIPHERAL
     Dosage: 50 MG, 3X/DAY
  2. LYRICA [Suspect]
     Dosage: 50 MG (1-2/DAY)

REACTIONS (4)
  - Dizziness [Unknown]
  - Feeling drunk [Unknown]
  - Balance disorder [Unknown]
  - Erectile dysfunction [Unknown]
